FAERS Safety Report 6425341-8 (Version None)
Quarter: 2009Q4

REPORT INFORMATION
  Report Type: 
  Country: None (occurrence: None)
  Receive Date: 20091103
  Receipt Date: 20091030
  Transmission Date: 20100525
  Serious: Yes (Hospitalization)
  Sender: FDA-Public Use
  Company Number: A0810226A

PATIENT
  Sex: Female
  Weight: 62.8 kg

DRUGS (6)
  1. LAPATINIB [Suspect]
     Indication: BREAST CANCER
     Dosage: 1000MG PER DAY
     Route: 048
     Dates: start: 20090915, end: 20090927
  2. TRASTUZUMAB [Suspect]
     Indication: BREAST CANCER
     Dosage: 4MGK WEEKLY
     Route: 042
     Dates: start: 20090915, end: 20090922
  3. PACLITAXEL [Suspect]
     Indication: BREAST CANCER
     Dosage: 80MGM2 WEEKLY
     Route: 042
     Dates: start: 20090915, end: 20090922
  4. CAPTOPRIL [Concomitant]
     Indication: HYPERTENSION
     Dosage: 75MG PER DAY
     Route: 048
     Dates: start: 20091003
  5. RANITIDINE [Concomitant]
     Indication: PROPHYLAXIS
     Dosage: 300MG PER DAY
     Route: 048
     Dates: start: 20090930
  6. AMLODIPINE [Concomitant]
     Indication: HYPERTENSION
     Dosage: 10MG PER DAY
     Route: 048
     Dates: start: 20091006

REACTIONS (11)
  - ANAEMIA [None]
  - BLOOD CREATININE INCREASED [None]
  - DEHYDRATION [None]
  - DIARRHOEA [None]
  - DYSPNOEA [None]
  - HYPOKALAEMIA [None]
  - HYPOTENSION [None]
  - NEUTROPENIA [None]
  - PNEUMONIA [None]
  - TACHYCARDIA [None]
  - THROMBOCYTOPENIA [None]
